FAERS Safety Report 9401973 (Version 3)
Quarter: 2013Q4

REPORT INFORMATION
  Report Type: Spontaneous
  Country: US (occurrence: US)
  Receive Date: 20130716
  Receipt Date: 20131021
  Transmission Date: 20140711
  Serious: Yes (Other)
  Sender: FDA-Public Use
  Company Number: US-PFIZER INC-2013205525

PATIENT
  Age: 67 Year
  Sex: Female
  Weight: 54.9 kg

DRUGS (1)
  1. PREMARIN [Suspect]
     Indication: VULVOVAGINAL DRYNESS
     Dosage: UNK, ONE TIME
     Route: 067
     Dates: start: 20130710, end: 20130711

REACTIONS (1)
  - Vaginal haemorrhage [Unknown]
